FAERS Safety Report 17546906 (Version 8)
Quarter: 2020Q2

REPORT INFORMATION
  Report Type: Report from Study
  Country: TR (occurrence: TR)
  Receive Date: 20200316
  Receipt Date: 20200624
  Transmission Date: 20200713
  Serious: Yes (Death, Hospitalization)
  Sender: FDA-Public Use
  Company Number: TR-CELGENEUS-TUR-20200210267

PATIENT
  Age: 70 Year
  Sex: Male
  Weight: 72 kg

DRUGS (55)
  1. POMALIDOMIDE [Suspect]
     Active Substance: POMALIDOMIDE
     Indication: PLASMA CELL MYELOMA
     Dosage: 4 MILLIGRAM
     Route: 048
     Dates: start: 20171214, end: 20171214
  2. POMALIDOMIDE [Suspect]
     Active Substance: POMALIDOMIDE
     Dosage: 4 MILLIGRAM
     Route: 048
     Dates: start: 20200205, end: 20200219
  3. FAMOTIDINE. [Concomitant]
     Active Substance: FAMOTIDINE
     Dosage: 40 MILLIGRAM
     Route: 041
     Dates: start: 20191210, end: 20191210
  4. VENTOLIN [Concomitant]
     Active Substance: ALBUTEROL SULFATE
     Indication: PRODUCT USED FOR UNKNOWN INDICATION
     Route: 065
     Dates: start: 20200105
  5. MUCINAC [Concomitant]
     Indication: PRODUCT USED FOR UNKNOWN INDICATION
     Route: 065
     Dates: start: 20200116
  6. BACTROBAN [Concomitant]
     Active Substance: MUPIROCIN\MUPIROCIN CALCIUM
     Indication: PRODUCT USED FOR UNKNOWN INDICATION
     Route: 065
     Dates: start: 20200129, end: 20200207
  7. ISATUXIMAB [Suspect]
     Active Substance: ISATUXIMAB
     Indication: PLASMA CELL MYELOMA
     Dosage: 10 MILLIGRAM/KILOGRAM
     Route: 041
     Dates: start: 20171214, end: 20171214
  8. ISATUXIMAB [Suspect]
     Active Substance: ISATUXIMAB
     Dosage: 10 MILLIGRAM/KILOGRAM
     Route: 041
     Dates: start: 20200205, end: 20200205
  9. FAMOTIDINE. [Concomitant]
     Active Substance: FAMOTIDINE
     Dosage: 40 MILLIGRAM
     Route: 041
     Dates: start: 20191224, end: 20191224
  10. FAMOTIDINE. [Concomitant]
     Active Substance: FAMOTIDINE
     Route: 041
     Dates: start: 20200205, end: 20200205
  11. FUROMID [Concomitant]
     Indication: PRODUCT USED FOR UNKNOWN INDICATION
     Route: 065
     Dates: start: 20200105
  12. TAZERACIN [Concomitant]
     Indication: PRODUCT USED FOR UNKNOWN INDICATION
     Route: 065
     Dates: start: 20200105
  13. KLAMER [Concomitant]
     Indication: PRODUCT USED FOR UNKNOWN INDICATION
     Route: 065
     Dates: start: 20200106
  14. ATORVASTATIN [Concomitant]
     Active Substance: ATORVASTATIN
     Indication: PRODUCT USED FOR UNKNOWN INDICATION
     Route: 065
     Dates: start: 20191210
  15. ONADRON [Concomitant]
     Indication: PNEUMONIA
     Route: 047
     Dates: start: 20200105, end: 20200107
  16. ONADRON [Concomitant]
     Indication: PRODUCT USED FOR UNKNOWN INDICATION
     Route: 047
     Dates: start: 20200218
  17. AVIL [Concomitant]
     Active Substance: PHENIRAMINE
     Route: 041
     Dates: start: 20200205, end: 20200205
  18. FAMOTIDINE. [Concomitant]
     Active Substance: FAMOTIDINE
     Indication: PROPHYLAXIS
     Dosage: 40 MILLIGRAM
     Route: 041
     Dates: start: 20191126, end: 20191126
  19. ZEFFIX [Concomitant]
     Active Substance: LAMIVUDINE
     Indication: PRODUCT USED FOR UNKNOWN INDICATION
     Route: 065
     Dates: start: 2015
  20. SYSTANE (HYPROMELLOSE 2910 (4000 MPA.S)) [Concomitant]
     Active Substance: HYPROMELLOSE 2910 (4000 MPA.S)
     Indication: PRODUCT USED FOR UNKNOWN INDICATION
     Route: 065
     Dates: start: 20190723
  21. ECOPIRIN [Concomitant]
     Active Substance: ASPIRIN
     Indication: PRODUCT USED FOR UNKNOWN INDICATION
     Route: 065
     Dates: start: 20200116
  22. BELOC ZOK [Concomitant]
     Active Substance: METOPROLOL SUCCINATE
     Indication: PRODUCT USED FOR UNKNOWN INDICATION
     Route: 065
     Dates: start: 20200116
  23. PREDNOL [Concomitant]
     Indication: PRODUCT USED FOR UNKNOWN INDICATION
     Route: 041
     Dates: start: 20200129, end: 20200130
  24. TRIFLUCAN [Concomitant]
     Active Substance: FLUCONAZOLE
     Indication: PRODUCT USED FOR UNKNOWN INDICATION
     Route: 065
  25. DEXAMETHASONE. [Suspect]
     Active Substance: DEXAMETHASONE
     Indication: PLASMA CELL MYELOMA
     Dosage: 8 MILLIGRAM
     Route: 048
     Dates: start: 20171214, end: 20171214
  26. PARACETAMOL [Concomitant]
     Active Substance: ACETAMINOPHEN
     Route: 041
     Dates: start: 20200205, end: 20200205
  27. LANSOR [Concomitant]
     Active Substance: LANSOPRAZOLE
     Indication: PRODUCT USED FOR UNKNOWN INDICATION
     Route: 065
     Dates: start: 2015
  28. FUROMID [Concomitant]
     Route: 065
     Dates: start: 20200129, end: 20200207
  29. NAZALNEM [Concomitant]
     Indication: PRODUCT USED FOR UNKNOWN INDICATION
     Route: 065
     Dates: start: 20200110
  30. FAMOTIDINE. [Concomitant]
     Active Substance: FAMOTIDINE
     Dosage: 40 MILLIGRAM
     Route: 041
     Dates: start: 20200107, end: 20200107
  31. DUPHALAC [Concomitant]
     Active Substance: LACTULOSE
     Route: 048
     Dates: start: 20200109, end: 20200109
  32. CORDARON [Concomitant]
     Active Substance: AMIODARONE HYDROCHLORIDE
     Indication: PRODUCT USED FOR UNKNOWN INDICATION
     Route: 065
     Dates: start: 20190426
  33. COMBIVENT [Concomitant]
     Active Substance: ALBUTEROL SULFATE\IPRATROPIUM BROMIDE
     Indication: PRODUCT USED FOR UNKNOWN INDICATION
     Route: 065
     Dates: start: 20191124
  34. TAZERACIN [Concomitant]
     Indication: PNEUMONIA
     Route: 065
     Dates: start: 20200219
  35. FENOKODIN [Concomitant]
     Indication: PRODUCT USED FOR UNKNOWN INDICATION
     Route: 065
     Dates: start: 20200107
  36. HUMULIN R [Concomitant]
     Active Substance: INSULIN HUMAN
     Indication: PRODUCT USED FOR UNKNOWN INDICATION
     Route: 065
     Dates: start: 20200109
  37. TARGOCID [Concomitant]
     Active Substance: TEICOPLANIN
     Indication: PRODUCT USED FOR UNKNOWN INDICATION
     Route: 065
     Dates: start: 20200121
  38. PREDNOL [Concomitant]
     Route: 041
     Dates: start: 20200218, end: 20200222
  39. PARACETAMOL [Concomitant]
     Active Substance: ACETAMINOPHEN
     Dosage: 1000 MILLIGRAM
     Route: 041
     Dates: start: 20191210, end: 20191210
  40. PARACETAMOL [Concomitant]
     Active Substance: ACETAMINOPHEN
     Dosage: 1000 MILLIGRAM
     Route: 041
     Dates: start: 20191224, end: 20191224
  41. AVIL [Concomitant]
     Active Substance: PHENIRAMINE
     Indication: PROPHYLAXIS
     Dosage: 45.5 MILLIGRAM
     Route: 041
     Dates: start: 20191126, end: 20191126
  42. DUPHALAC [Concomitant]
     Active Substance: LACTULOSE
     Indication: PRODUCT USED FOR UNKNOWN INDICATION
     Route: 065
     Dates: start: 20180416
  43. LIXIANA [Concomitant]
     Active Substance: EDOXABAN TOSYLATE
     Indication: PRODUCT USED FOR UNKNOWN INDICATION
     Route: 065
     Dates: start: 20190702
  44. DEXA-SINE [Concomitant]
     Active Substance: DEXAMETHASONE SODIUM PHOSPHATE
     Indication: PRODUCT USED FOR UNKNOWN INDICATION
     Route: 065
     Dates: start: 20190723
  45. HIRUDOID FORTE [Concomitant]
     Indication: PRODUCT USED FOR UNKNOWN INDICATION
     Route: 023
     Dates: start: 20200129, end: 20200131
  46. AVIL [Concomitant]
     Active Substance: PHENIRAMINE
     Dosage: 45.5 MILLIGRAM
     Route: 041
     Dates: start: 20191210, end: 20191210
  47. AVIL [Concomitant]
     Active Substance: PHENIRAMINE
     Dosage: 45.5 MILLIGRAM
     Route: 041
     Dates: start: 20191224, end: 20191224
  48. AVIL [Concomitant]
     Active Substance: PHENIRAMINE
     Dosage: 45.5 MILLIGRAM
     Route: 041
     Dates: start: 20200107, end: 20200107
  49. MEGAFLOR [Concomitant]
     Indication: PRODUCT USED FOR UNKNOWN INDICATION
     Route: 065
     Dates: start: 20190521
  50. IPRASAL [Concomitant]
     Active Substance: ALBUTEROL SULFATE\IPRATROPIUM BROMIDE
     Indication: PRODUCT USED FOR UNKNOWN INDICATION
     Route: 065
     Dates: start: 20191124
  51. BUDESONIDE. [Concomitant]
     Active Substance: BUDESONIDE
     Indication: PRODUCT USED FOR UNKNOWN INDICATION
     Route: 065
     Dates: start: 20200105
  52. DEXAMETHASONE. [Suspect]
     Active Substance: DEXAMETHASONE
     Dosage: 8 MILLIGRAM
     Route: 048
     Dates: start: 20200213, end: 20200213
  53. PARACETAMOL [Concomitant]
     Active Substance: ACETAMINOPHEN
     Indication: PROPHYLAXIS
     Dosage: 1000 MILLIGRAM
     Route: 041
     Dates: start: 20191126, end: 20191126
  54. PARACETAMOL [Concomitant]
     Active Substance: ACETAMINOPHEN
     Dosage: 1000 MILLIGRAM
     Route: 041
     Dates: start: 20200107, end: 20200107
  55. OKSAPAR [Concomitant]
     Indication: PRODUCT USED FOR UNKNOWN INDICATION
     Route: 065
     Dates: start: 20200116

REACTIONS (3)
  - Oedema peripheral [Recovered/Resolved]
  - Pneumonia [Recovered/Resolved]
  - Cardiac failure [Fatal]

NARRATIVE: CASE EVENT DATE: 20200215
